FAERS Safety Report 13700409 (Version 2)
Quarter: 2017Q3

REPORT INFORMATION
  Report Type: Spontaneous
  Country: US (occurrence: US)
  Receive Date: 20170629
  Receipt Date: 20170719
  Transmission Date: 20171127
  Serious: No
  Sender: FDA-Public Use
  Company Number: US-HETERO LABS LTD-2022643

PATIENT
  Age: 53 Year
  Sex: Male
  Weight: 66.2 kg

DRUGS (1)
  1. PANTOPRAZOLE [Suspect]
     Active Substance: PANTOPRAZOLE
     Indication: GASTROOESOPHAGEAL REFLUX DISEASE
     Route: 048

REACTIONS (3)
  - Product substitution issue [Unknown]
  - Product solubility abnormal [Unknown]
  - Drug ineffective [Unknown]
